FAERS Safety Report 4781631-6 (Version None)
Quarter: 2005Q3

REPORT INFORMATION
  Report Type: 
  Country: None (occurrence: None)
  Receive Date: 20050927
  Receipt Date: 20050914
  Transmission Date: 20060218
  Serious: Yes (Other)
  Sender: FDA-Public Use
  Company Number: 2005088628

PATIENT
  Age: 45 Year
  Sex: Female
  Weight: 65 kg

DRUGS (2)
  1. SOMAVERT [Suspect]
     Indication: ACROMEGALY
     Dosage: 10 MG (1 IN 1 D), SUBCUTANEOUS
     Route: 058
     Dates: start: 20050517, end: 20050601
  2. LANREOTIDE ACETATE (LANREOTIDE ACETATE) [Concomitant]

REACTIONS (7)
  - DISEASE RECURRENCE [None]
  - DYSPHONIA [None]
  - DYSPNOEA [None]
  - LARYNGOSPASM [None]
  - NECK PAIN [None]
  - PARALYSIS [None]
  - THYROID NEOPLASM [None]
